FAERS Safety Report 5357743-5 (Version None)
Quarter: 2007Q2

REPORT INFORMATION
  Report Type: 
  Country: None (occurrence: None)
  Receive Date: 20070614
  Receipt Date: 20070605
  Transmission Date: 20071010
  Serious: Yes (Hospitalization)
  Sender: FDA-Public Use
  Company Number: ES-PFIZER INC-2007040665

PATIENT
  Sex: Male

DRUGS (17)
  1. SU-011,248 [Suspect]
     Indication: NON-SMALL CELL LUNG CANCER
     Route: 048
     Dates: start: 20070512, end: 20070516
  2. CISPLATIN [Suspect]
     Indication: NON-SMALL CELL LUNG CANCER
     Route: 042
     Dates: start: 20070510, end: 20070510
  3. GEMCITABINE [Suspect]
     Indication: NON-SMALL CELL LUNG CANCER
     Route: 042
     Dates: start: 20070510, end: 20070510
  4. DURAGESIC-100 [Concomitant]
     Route: 062
  5. METAMIZOLE [Concomitant]
     Route: 048
  6. OMEPRAZOLE [Concomitant]
     Route: 048
  7. FORTECORTIN [Concomitant]
     Route: 048
  8. DUPHALAC [Concomitant]
     Route: 048
  9. DICLOFENAC [Concomitant]
     Route: 048
  10. ACTIQ [Concomitant]
     Route: 048
  11. GABAPENTIN [Concomitant]
     Route: 048
  12. SERETIDE [Concomitant]
     Route: 048
  13. PULMICORT [Concomitant]
     Route: 055
  14. ATROVENT [Concomitant]
     Route: 055
  15. MAGNESIUM SULFATE [Concomitant]
     Route: 048
  16. YATROX [Concomitant]
     Route: 048
  17. ORAMORPH SR [Concomitant]
     Route: 048

REACTIONS (3)
  - DIARRHOEA [None]
  - INTESTINAL OBSTRUCTION [None]
  - NEUTROPENIA [None]
